FAERS Safety Report 8514215-4 (Version None)
Quarter: 2012Q3

REPORT INFORMATION
  Report Type: 
  Country: None (occurrence: None)
  Receive Date: 20120717
  Receipt Date: 20120709
  Transmission Date: 20120928
  Serious: Yes (Hospitalization)
  Sender: FDA-Public Use
  Company Number: US-BAYER-2012-062416

PATIENT
  Age: 41 Year
  Sex: Female
  Weight: 61.224 kg

DRUGS (8)
  1. YAZ [Suspect]
     Indication: CONTRACEPTION
     Dosage: UNK
     Dates: start: 20110131, end: 20110619
  2. PROTON PUMP INHIBITORS [Concomitant]
  3. NSAID'S [Concomitant]
  4. ANTIMIGRAINE PREPARATIONS [Concomitant]
  5. MORPHINE [Concomitant]
     Indication: PAIN
  6. DROSPIRENONE AND ETHINYL ESTRADIOL [Suspect]
     Indication: CONTRACEPTION
     Dosage: UNK
     Dates: start: 20110815, end: 20120220
  7. DEXILANT [Concomitant]
     Dosage: 600 MG, UNK
     Route: 048
     Dates: start: 20120130
  8. CALCIUM [Concomitant]

REACTIONS (7)
  - ATELECTASIS [None]
  - CHEST PAIN [None]
  - INJURY [None]
  - DEEP VEIN THROMBOSIS [None]
  - THROMBOPHLEBITIS SUPERFICIAL [None]
  - DYSPNOEA [None]
  - PULMONARY EMBOLISM [None]
